FAERS Safety Report 8152833-6 (Version None)
Quarter: 2012Q1

REPORT INFORMATION
  Report Type: 
  Country: None (occurrence: None)
  Receive Date: 20120221
  Receipt Date: 20120207
  Transmission Date: 20120608
  Serious: Yes (Other)
  Sender: FDA-Public Use
  Company Number: AU-AMGEN-AUSSP2012009603

PATIENT
  Age: 55 Year
  Sex: Female

DRUGS (7)
  1. METFORMIN HCL [Concomitant]
     Dosage: 1 G T.D.S.
  2. ETANERCEPT [Suspect]
     Indication: PSORIATIC ARTHROPATHY
     Dosage: 50 MG/WEEK
     Dates: start: 20060301
  3. METHOTREXATE [Concomitant]
     Dosage: 5 MG.WEEK
  4. NIFEDIPINE [Concomitant]
     Dosage: 10 MG/DAY
  5. GLICLAZIDE [Concomitant]
     Dosage: 80 MG/DAY
  6. ETANERCEPT [Suspect]
     Dosage: UNK
  7. CANDESARTAN CILEXETIL [Concomitant]
     Dosage: 32 MG/DAY

REACTIONS (1)
  - TUBULOINTERSTITIAL NEPHRITIS [None]
